FAERS Safety Report 19000308 (Version 1)
Quarter: 2021Q1

REPORT INFORMATION
  Report Type: Report from Study
  Country: ZA (occurrence: ZA)
  Receive Date: 20210311
  Receipt Date: 20210311
  Transmission Date: 20210420
  Serious: Yes (Hospitalization)
  Sender: FDA-Public Use
  Company Number: ZA-GILEAD-2021-0519419

PATIENT
  Age: 25 Year
  Sex: Female

DRUGS (6)
  1. IBUPROFEN. [Concomitant]
     Active Substance: IBUPROFEN
  2. AMOXYGEN [Concomitant]
  3. PANADO [Concomitant]
     Active Substance: ACETAMINOPHEN
  4. VITAMIN B CO [Concomitant]
  5. METRONIDAZOLE. [Concomitant]
     Active Substance: METRONIDAZOLE
  6. EMTRICITABINE;TENOFOVIR DISOPROXIL FUMARATE [Suspect]
     Active Substance: EMTRICITABINE\TENOFOVIR DISOPROXIL FUMARATE
     Indication: PROPHYLAXIS AGAINST HIV INFECTION
     Dosage: UNK
     Route: 065
     Dates: start: 20200226, end: 20201118

REACTIONS (4)
  - Back pain [Not Recovered/Not Resolved]
  - Urinary tract infection [Unknown]
  - Haematuria [Unknown]
  - Maternal exposure during pregnancy [Recovered/Resolved]

NARRATIVE: CASE EVENT DATE: 20201105
